FAERS Safety Report 17190041 (Version 1)
Quarter: 2019Q4

REPORT INFORMATION
  Report Type: Spontaneous
  Country: TR (occurrence: TR)
  Receive Date: 20191223
  Receipt Date: 20191223
  Transmission Date: 20200122
  Serious: Yes (Other)
  Sender: FDA-Public Use
  Company Number: TR-LUPIN PHARMACEUTICALS INC.-2019-08464

PATIENT
  Age: 33 Year
  Sex: Male

DRUGS (4)
  1. AMOXICILLIN CLAVULANIC ACID [Concomitant]
     Active Substance: AMOXICILLIN\CLAVULANIC ACID
     Indication: UPPER RESPIRATORY TRACT INFECTION
     Dosage: UNK
     Route: 048
  2. CEFAZOLIN [Suspect]
     Active Substance: CEFAZOLIN
     Indication: UPPER RESPIRATORY TRACT INFECTION
     Dosage: UNK
     Route: 042
  3. MORPHINE [Suspect]
     Active Substance: MORPHINE
     Indication: PAIN
     Dosage: 2 MILLIGRAM, SINGLE
     Route: 042
  4. METHIMAZOLE. [Concomitant]
     Active Substance: METHIMAZOLE
     Indication: UPPER RESPIRATORY TRACT INFECTION
     Dosage: UNK
     Route: 042

REACTIONS (3)
  - Hypersensitivity [Unknown]
  - Angina pectoris [Recovering/Resolving]
  - Kounis syndrome [Unknown]
